FAERS Safety Report 6397935-X (Version None)
Quarter: 2009Q4

REPORT INFORMATION
  Report Type: 
  Country: None (occurrence: None)
  Receive Date: 20091006
  Receipt Date: 20090916
  Transmission Date: 20100525
  Serious: Yes (Other)
  Sender: FDA-Public Use
  Company Number: JPI-P-008569

PATIENT
  Age: 51 Year
  Sex: Female
  Weight: 52.6173 kg

DRUGS (6)
  1. XYREM [Suspect]
     Indication: INSOMNIA
     Dosage: SEE IMAGE
     Route: 048
     Dates: start: 20090827, end: 20090903
  2. XYREM [Suspect]
     Indication: INSOMNIA
     Dosage: SEE IMAGE
     Route: 048
     Dates: start: 20090904, end: 20090910
  3. XYREM [Suspect]
     Indication: INSOMNIA
     Dosage: SEE IMAGE
     Route: 048
     Dates: start: 20090911, end: 20090911
  4. XYREM [Suspect]
     Indication: INSOMNIA
     Dosage: SEE IMAGE
     Route: 048
     Dates: start: 20090912, end: 20090912
  5. VENLAFAXINE HCL [Concomitant]
  6. LISDEXAMFETAMINE DIMESYLATE [Concomitant]

REACTIONS (23)
  - ABASIA [None]
  - ABDOMINAL DISCOMFORT [None]
  - BLOOD PRESSURE INCREASED [None]
  - CONFUSIONAL STATE [None]
  - DISTURBANCE IN ATTENTION [None]
  - DYSKINESIA [None]
  - DYSPNOEA [None]
  - EYE SWELLING [None]
  - FEELING ABNORMAL [None]
  - GAIT DISTURBANCE [None]
  - JOINT LOCK [None]
  - MUSCULOSKELETAL STIFFNESS [None]
  - NAUSEA [None]
  - POOR QUALITY SLEEP [None]
  - SENSATION OF HEAVINESS [None]
  - SPEECH DISORDER [None]
  - SWELLING FACE [None]
  - SWOLLEN TONGUE [None]
  - THINKING ABNORMAL [None]
  - THROAT TIGHTNESS [None]
  - TINNITUS [None]
  - TRISMUS [None]
  - WEIGHT DECREASED [None]
